FAERS Safety Report 9698400 (Version 2)
Quarter: 2013Q4

REPORT INFORMATION
  Report Type: Report from Study
  Country: US (occurrence: US)
  Receive Date: 20131120
  Receipt Date: 20131120
  Transmission Date: 20140711
  Serious: Yes (Other)
  Sender: FDA-Public Use
  Company Number: US-CELGENEUS-163-C4047-12060774

PATIENT
  Sex: 0

DRUGS (4)
  1. CC-4047 [Suspect]
     Indication: PLASMA CELL MYELOMA
     Dosage: 4 MILLIGRAM
     Route: 048
  2. CLARITHROMYCIN [Suspect]
     Indication: PLASMA CELL MYELOMA
     Dosage: 1000 MILLIGRAM
     Route: 048
  3. DEXAMETHASONE [Suspect]
     Indication: PLASMA CELL MYELOMA
     Dosage: 40 MILLIGRAM
     Route: 048
  4. ASA [Concomitant]
     Indication: THROMBOSIS PROPHYLAXIS
     Dosage: 81 MILLIGRAM
     Route: 065

REACTIONS (14)
  - Hypoglycaemia [Unknown]
  - Muscular weakness [Unknown]
  - Cardiac failure congestive [Unknown]
  - Venous thrombosis [Unknown]
  - Fatigue [Unknown]
  - Febrile neutropenia [Unknown]
  - Anaemia [Unknown]
  - Thrombocytopenia [Unknown]
  - Neutropenia [Unknown]
  - Hyperglycaemia [Unknown]
  - Neutropenic sepsis [Unknown]
  - Pneumonia [Unknown]
  - Lymphopenia [Unknown]
  - Neuropathy peripheral [Unknown]
